FAERS Safety Report 20224178 (Version 1)
Quarter: 2021Q4

REPORT INFORMATION
  Report Type: Spontaneous
  Country: US (occurrence: None)
  Receive Date: 20211223
  Receipt Date: 20211223
  Transmission Date: 20220304
  Serious: No
  Sender: FDA-Public Use
  Company Number: None

PATIENT
  Sex: Female

DRUGS (1)
  1. OTEZLA [Suspect]
     Active Substance: APREMILAST
     Indication: Polyarthritis
     Dosage: FREQUENCY : TWICE A DAY;?
     Route: 048
     Dates: start: 202111

REACTIONS (1)
  - Drug ineffective [None]
